FAERS Safety Report 18422679 (Version 10)
Quarter: 2022Q1

REPORT INFORMATION
  Report Type: Spontaneous
  Country: US (occurrence: US)
  Receive Date: 20201023
  Receipt Date: 20220324
  Transmission Date: 20220423
  Serious: No
  Sender: FDA-Public Use
  Company Number: US-PFIZER INC-2020411379

PATIENT
  Age: 62 Year
  Sex: Female
  Weight: 59.87 kg

DRUGS (5)
  1. IBRANCE [Suspect]
     Active Substance: PALBOCICLIB
     Indication: Breast cancer female
     Dosage: UNK
     Dates: start: 201608
  2. IBRANCE [Suspect]
     Active Substance: PALBOCICLIB
     Dosage: 100 MG, CYCLIC (TAKE 1 PO (ORAL) QD (ONCE A DAY) FOR 21 DAYS OFF 7 DAYS)
     Route: 048
     Dates: start: 20170829
  3. IBRANCE [Suspect]
     Active Substance: PALBOCICLIB
     Dosage: 100 MG, CYCLIC (TAKE 1 PO (ORAL) QD (ONCE A DAY) FOR 21 DAYS OFF 7 DAYS)
     Route: 048
     Dates: start: 20191025, end: 20200715
  4. IBRANCE [Suspect]
     Active Substance: PALBOCICLIB
     Dosage: 75 MG, CYCLIC
  5. TALAZOPARIB [Concomitant]
     Active Substance: TALAZOPARIB
     Dosage: UNK

REACTIONS (2)
  - Mass [Not Recovered/Not Resolved]
  - Neoplasm progression [Unknown]
